FAERS Safety Report 20197984 (Version 2)
Quarter: 2022Q1

REPORT INFORMATION
  Report Type: Report from Study
  Country: US (occurrence: US)
  Receive Date: 20211217
  Receipt Date: 20220125
  Transmission Date: 20220423
  Serious: Yes (Other)
  Sender: FDA-Public Use
  Company Number: US-BRISTOL-MYERS SQUIBB COMPANY-BMS-2021-136583

PATIENT
  Age: 84 Year
  Sex: Female

DRUGS (1)
  1. APIXABAN [Suspect]
     Active Substance: APIXABAN
     Indication: Product used for unknown indication
     Dosage: UNK
     Route: 065
     Dates: start: 2021

REACTIONS (5)
  - Fall [Unknown]
  - Rib fracture [Unknown]
  - Visual impairment [Unknown]
  - Limb injury [Unknown]
  - Loose tooth [Unknown]
